FAERS Safety Report 6252911-2 (Version None)
Quarter: 2009Q3

REPORT INFORMATION
  Report Type: 
  Country: None (occurrence: None)
  Receive Date: 20090701
  Receipt Date: 20090622
  Transmission Date: 20100115
  Serious: Yes (Hospitalization)
  Sender: FDA-Public Use
  Company Number: A0790551A

PATIENT
  Age: 47 Year
  Sex: Female

DRUGS (1)
  1. ROSIGLITAZONE [Suspect]
     Dosage: 8MG TWICE PER DAY
     Route: 048
     Dates: start: 20020101, end: 20070601

REACTIONS (2)
  - CARDIAC FAILURE CONGESTIVE [None]
  - MYOCARDIAL INFARCTION [None]
